FAERS Safety Report 10167977 (Version 2)
Quarter: 2014Q2

REPORT INFORMATION
  Report Type: Spontaneous
  Country: GB (occurrence: GB)
  Receive Date: 20140512
  Receipt Date: 20140623
  Transmission Date: 20141212
  Serious: Yes (Other)
  Sender: FDA-Public Use
  Company Number: GB-GLAXOSMITHKLINE-B0985411A

PATIENT
  Age: 41 Year
  Sex: Male

DRUGS (9)
  1. LAMICTAL [Suspect]
     Indication: EPILEPSY
     Dosage: 400MG PER DAY
     Route: 048
     Dates: start: 199502
  2. TEGRETOL [Suspect]
     Indication: EPILEPSY
     Route: 048
     Dates: start: 1989, end: 20140101
  3. VITAMIN D [Concomitant]
  4. UNKNOWN MEDICATION [Concomitant]
     Indication: EPILEPSY
  5. SODIUM VALPROATE [Concomitant]
     Dates: start: 1993
  6. TOPIRAMATE [Concomitant]
     Dosage: 25MG ALTERNATE DAYS
     Dates: start: 2007
  7. EPILIM CHRONO [Concomitant]
  8. COLECALCIFEROL [Concomitant]
     Dosage: 3TAB PER DAY
  9. ADCAL [Concomitant]
     Dosage: 1TAB PER DAY

REACTIONS (32)
  - Generalised tonic-clonic seizure [Unknown]
  - Faecaloma [Unknown]
  - Neutropenia [Unknown]
  - Hallucination [Recovering/Resolving]
  - Anxiety [Recovering/Resolving]
  - Psychotic disorder [Recovering/Resolving]
  - Ataxia [Unknown]
  - Dyskinesia [Unknown]
  - Fear [Unknown]
  - Insomnia [Unknown]
  - Catatonia [Unknown]
  - Agitation [Unknown]
  - Abnormal behaviour [Unknown]
  - Aggression [Unknown]
  - Depressed mood [Unknown]
  - Emotional distress [Unknown]
  - Irritability [Unknown]
  - Gastrointestinal disorder [Unknown]
  - Hypersomnia [Unknown]
  - Speech disorder [Unknown]
  - Diarrhoea [Unknown]
  - Emotional disorder [Unknown]
  - Upper respiratory tract infection [Unknown]
  - Suspiciousness [Unknown]
  - Staring [Unknown]
  - Self esteem inflated [Unknown]
  - Distractibility [Unknown]
  - Decreased appetite [Unknown]
  - Balance disorder [Unknown]
  - Fatigue [Unknown]
  - Bone density decreased [Unknown]
  - Malaise [Unknown]
